FAERS Safety Report 9566299 (Version 2)
Quarter: 2013Q3

REPORT INFORMATION
  Report Type: Spontaneous
  Country: JP (occurrence: JP)
  Receive Date: 20130930
  Receipt Date: 20130930
  Transmission Date: 20140515
  Serious: Yes (Hospitalization)
  Sender: FDA-Public Use
  Company Number: JP-B.I. PHARMACEUTICALS,INC./RIDGEFIELD-2013-BI-25903NB

PATIENT
  Age: 66 Year
  Sex: Female
  Weight: 64 kg

DRUGS (2)
  1. PRAZAXA [Suspect]
     Indication: THROMBOSIS PROPHYLAXIS
     Dosage: 300 MG
     Route: 048
     Dates: start: 20120922, end: 20130820
  2. MERCAZOLE/THIAMAZOLE [Concomitant]
     Dosage: 15 MG
     Route: 048
     Dates: start: 200811

REACTIONS (2)
  - Mucosal haemorrhage [Not Recovered/Not Resolved]
  - Intestinal stenosis [Not Recovered/Not Resolved]
